FAERS Safety Report 20385380 (Version 1)
Quarter: 2022Q1

REPORT INFORMATION
  Report Type: Spontaneous
  Country: US (occurrence: None)
  Receive Date: 20220127
  Receipt Date: 20220127
  Transmission Date: 20220423
  Serious: Yes (Hospitalization, Other)
  Sender: FDA-Public Use
  Company Number: None

PATIENT
  Age: 32 Year
  Sex: Female
  Weight: 81 kg

DRUGS (2)
  1. PFIZER-BIONTECH COVID-19 VACCINE [Suspect]
     Active Substance: TOZINAMERAN
     Indication: Drug interaction
     Dates: start: 20211223, end: 20211223
  2. CLOZAPINE [Suspect]
     Active Substance: CLOZAPINE

REACTIONS (9)
  - Unevaluable event [None]
  - Therapy change [None]
  - Psychotic disorder [None]
  - Delusion [None]
  - Paranoia [None]
  - Anger [None]
  - Mania [None]
  - Drug interaction [None]
  - Metabolic disorder [None]

NARRATIVE: CASE EVENT DATE: 20220110
